FAERS Safety Report 9670460 (Version 1)
Quarter: 2013Q4

REPORT INFORMATION
  Report Type: Spontaneous
  Country: US (occurrence: US)
  Receive Date: 20131106
  Receipt Date: 20131106
  Transmission Date: 20140711
  Serious: Yes (Other)
  Sender: FDA-Public Use
  Company Number: US-AMGEN-USASP2013077027

PATIENT
  Age: 57 Year
  Sex: Female

DRUGS (1)
  1. ARANESP [Suspect]
     Indication: ANAEMIA
     Dosage: 100 MG, QWK
     Route: 065
     Dates: start: 201310

REACTIONS (4)
  - Diabetic foot [Unknown]
  - Haemoglobin decreased [Unknown]
  - Osteomyelitis [Unknown]
  - Drug ineffective [Unknown]
